FAERS Safety Report 5835914-9 (Version None)
Quarter: 2008Q3

REPORT INFORMATION
  Report Type: 
  Country: None (occurrence: None)
  Receive Date: 20080805
  Receipt Date: 20080721
  Transmission Date: 20090109
  Serious: Yes (Hospitalization)
  Sender: FDA-Public Use
  Company Number: B0531420A

PATIENT
  Age: 54 Year
  Sex: Female

DRUGS (4)
  1. LAMIVUDINE [Suspect]
     Indication: HIV INFECTION CDC GROUP I
     Dosage: 150 MG / TWICE PER DAY /
     Dates: start: 20060101
  2. STAVUDINE [Suspect]
     Indication: HIV INFECTION CDC GROUP I
     Dosage: 40 MG / TWICE PER DAY /
     Dates: start: 20060101
  3. EFAVIRENZ (FORMULATION UNKNOWN) (EFAVIRENZ) [Suspect]
     Indication: HIV INFECTION CDC GROUP I
     Dosage: 600 MG / AT NIGHT /
     Dates: start: 20060101
  4. CO-TRIMOXAZOLE [Concomitant]

REACTIONS (4)
  - BREAST MASS [None]
  - CRYPTOCOCCOSIS [None]
  - IMMUNE RECONSTITUTION SYNDROME [None]
  - TREATMENT FAILURE [None]
